FAERS Safety Report 6956259-X (Version None)
Quarter: 2010Q3

REPORT INFORMATION
  Report Type: 
  Country: None (occurrence: None)
  Receive Date: 20100830
  Receipt Date: 20100820
  Transmission Date: 20110219
  Serious: Yes (Hospitalization)
  Sender: FDA-Public Use
  Company Number: A0871999B

PATIENT
  Sex: Male
  Weight: 93.9 kg

DRUGS (1)
  1. OFATUMUMAB [Suspect]
     Indication: CHRONIC LYMPHOCYTIC LEUKAEMIA
     Dosage: 300MG CYCLIC
     Route: 042
     Dates: start: 20100628

REACTIONS (1)
  - FEBRILE NEUTROPENIA [None]
